FAERS Safety Report 13273710 (Version 1)
Quarter: 2017Q1

REPORT INFORMATION
  Report Type: Spontaneous
  Country: IL (occurrence: IL)
  Receive Date: 20170227
  Receipt Date: 20170227
  Transmission Date: 20170428
  Serious: Yes (Other)
  Sender: FDA-Public Use
  Company Number: IL-PFIZER INC-2017077641

PATIENT
  Age: 72 Year
  Sex: Female

DRUGS (2)
  1. PAMIDRONATE DISODIUM. [Suspect]
     Active Substance: PAMIDRONATE DISODIUM
     Indication: BLOOD CALCIUM ABNORMAL
  2. PAMIDRONATE DISODIUM. [Suspect]
     Active Substance: PAMIDRONATE DISODIUM
     Indication: PRIMARY HYPERTHYROIDISM
     Dosage: 45 MG, UNK
     Route: 042

REACTIONS (1)
  - Chondrocalcinosis pyrophosphate [Recovered/Resolved]
